FAERS Safety Report 17974443 (Version 5)
Quarter: 2022Q3

REPORT INFORMATION
  Report Type: Spontaneous
  Country: US (occurrence: US)
  Receive Date: 20200702
  Receipt Date: 20220830
  Transmission Date: 20221027
  Serious: No
  Sender: FDA-Public Use
  Company Number: US-PFIZER INC-2018018102

PATIENT
  Age: 70 Year
  Sex: Female
  Weight: 56.7 kg

DRUGS (1)
  1. IBRANCE [Suspect]
     Active Substance: PALBOCICLIB
     Indication: Breast cancer stage IV
     Dosage: 125 MG, CYCLIC (125MG ONCE A DAY FOR 21 DAYS AND THEN OFF FOR SEVEN)
     Route: 048

REACTIONS (11)
  - Intentional product misuse [Unknown]
  - Neoplasm progression [Unknown]
  - White blood cell count decreased [Not Recovered/Not Resolved]
  - Fatigue [Unknown]
  - Asthenia [Unknown]
  - Dyspnoea [Unknown]
  - Wheezing [Unknown]
  - Abdominal distension [Unknown]
  - Dysphagia [Unknown]
  - Illness [Unknown]
  - Nasopharyngitis [Unknown]
